FAERS Safety Report 5446789-4 (Version None)
Quarter: 2007Q3

REPORT INFORMATION
  Report Type: 
  Country: None (occurrence: None)
  Receive Date: 20070907
  Receipt Date: 20070831
  Transmission Date: 20080115
  Serious: Yes (Hospitalization)
  Sender: FDA-Public Use
  Company Number: ES-ABBOTT-04P-144-0249477-00

PATIENT
  Age: 71 Year
  Sex: Female
  Weight: 75 kg

DRUGS (3)
  1. VALPROIC ACID [Suspect]
     Indication: CONVULSION
     Route: 050
  2. VALPROIC ACID [Interacting]
     Route: 042
  3. MEROPENEM [Interacting]
     Indication: CONVULSION
     Route: 042

REACTIONS (5)
  - ANTICONVULSANT DRUG LEVEL DECREASED [None]
  - DRUG INTERACTION [None]
  - DRUG LEVEL BELOW THERAPEUTIC [None]
  - PNEUMONIA [None]
  - SIMPLE PARTIAL SEIZURES [None]
